FAERS Safety Report 7011273-3 (Version None)
Quarter: 2010Q3

REPORT INFORMATION
  Report Type: 
  Country: None (occurrence: None)
  Receive Date: 20100922
  Receipt Date: 20100922
  Transmission Date: 20110219
  Serious: Yes (Hospitalization)
  Sender: FDA-Public Use
  Company Number: None

PATIENT
  Age: 47 Year
  Sex: Female

DRUGS (2)
  1. METHIMAZOLE [Suspect]
     Indication: BASEDOW'S DISEASE
     Dosage: 3 TABLETS ONCE DAILY PO
     Route: 048
     Dates: start: 20100805, end: 20100829
  2. ATENOLOL [Suspect]
     Indication: BASEDOW'S DISEASE
     Dosage: 1 TABLET TWICE DAILY PO
     Route: 048
     Dates: start: 20100805, end: 20100920

REACTIONS (2)
  - AGRANULOCYTOSIS [None]
  - FEBRILE NEUTROPENIA [None]
